FAERS Safety Report 14228173 (Version 4)
Quarter: 2018Q2

REPORT INFORMATION
  Report Type: Spontaneous
  Country: JP (occurrence: JP)
  Receive Date: 20171127
  Receipt Date: 20180410
  Transmission Date: 20180711
  Serious: Yes (Death, Life-Threatening, Hospitalization, Other)
  Sender: FDA-Public Use
  Company Number: JP-BRISTOL-MYERS SQUIBB COMPANY-BMS-2017-107135

PATIENT
  Age: 68 Year
  Sex: Male

DRUGS (1)
  1. OPDIVO [Suspect]
     Active Substance: NIVOLUMAB
     Indication: RENAL CELL CARCINOMA
     Dosage: 230 MG, UNK
     Route: 041
     Dates: start: 20170821, end: 20171019

REACTIONS (4)
  - Multiple organ dysfunction syndrome [Fatal]
  - Interstitial lung disease [Fatal]
  - General physical condition [Unknown]
  - Condition aggravated [Unknown]

NARRATIVE: CASE EVENT DATE: 201711
